FAERS Safety Report 10009446 (Version 2)
Quarter: 2014Q1

REPORT INFORMATION
  Report Type: Spontaneous
  Country: US (occurrence: US)
  Receive Date: 20140313
  Receipt Date: 20140313
  Transmission Date: 20141002
  Serious: No
  Sender: FDA-Public Use
  Company Number: US-INCYTE CORPORATION-2012IN000971

PATIENT
  Age: 81 Year
  Sex: Female
  Weight: 55 kg

DRUGS (13)
  1. JAKAFI [Suspect]
     Dosage: 15 MG, BID
     Route: 048
     Dates: start: 20120621
  2. PLAVIX [Concomitant]
     Dosage: 75 MG, QD
     Route: 048
     Dates: start: 20120216
  3. SENOKOT S [Concomitant]
     Indication: CONSTIPATION
     Dosage: 1 TO 2 DF, BID
     Dates: start: 20110404
  4. MILK OF MAGNESIA [Concomitant]
     Indication: CONSTIPATION
     Dosage: 30 ML, QD, PRN
     Dates: start: 20110404
  5. ZYLOPRIM [Concomitant]
     Dosage: 300 MG, QD
     Route: 048
     Dates: start: 20110915
  6. ATENOLOL [Concomitant]
     Dosage: 25 MG, BID
     Route: 048
     Dates: start: 20120119
  7. FUROSEMIDE [Concomitant]
     Dosage: 20 MG, BID
     Route: 048
     Dates: start: 20120216
  8. SPIRONOLACTONE [Concomitant]
     Dosage: 25 MG, BID
     Route: 048
     Dates: start: 20120216
  9. CYCLOBENZAPRINE HYDROCHLORIDE [Concomitant]
     Dosage: 10 MG, TID, PRN
     Route: 048
     Dates: start: 20120216
  10. MORPHINE SULFATE [Concomitant]
     Dosage: 5 TO 10 MG, Q4H, PRN
     Dates: start: 20120216
  11. TYLENOL [Concomitant]
     Dosage: UNK
     Dates: start: 20060615
  12. CEPHALEXIN [Concomitant]
     Dosage: UNK
     Dates: start: 20070426
  13. JAKAFI [Suspect]
     Indication: MYELOFIBROSIS
     Dosage: 10 MG, BID
     Route: 048
     Dates: start: 20120207, end: 20120621

REACTIONS (3)
  - Pruritus [Not Recovered/Not Resolved]
  - Skin discolouration [Not Recovered/Not Resolved]
  - Weight increased [Not Recovered/Not Resolved]
